FAERS Safety Report 5510111-5 (Version None)
Quarter: 2007Q4

REPORT INFORMATION
  Report Type: 
  Country: None (occurrence: None)
  Receive Date: 20071108
  Receipt Date: 20071031
  Transmission Date: 20080405
  Serious: Yes (Other)
  Sender: FDA-Public Use
  Company Number: US-ASTRAZENECA-2007UW25375

PATIENT
  Age: 9 Year
  Sex: Male
  Weight: 45.4 kg

DRUGS (3)
  1. PULMICORT [Suspect]
     Indication: ASTHMA
     Dosage: 1 PUFF BID
     Route: 055
     Dates: start: 20030101, end: 20070201
  2. PULMICORT RESPULES [Suspect]
     Indication: ASTHMA
     Dosage: 0.5 MG/2ML BID
     Route: 055
  3. NAPROXIN [Concomitant]

REACTIONS (11)
  - BACK PAIN [None]
  - DIAPHRAGMALGIA [None]
  - FALL [None]
  - FOOT FRACTURE [None]
  - MUSCULOSKELETAL CHEST PAIN [None]
  - OSTEOPOROSIS [None]
  - PAIN [None]
  - SEVER'S DISEASE [None]
  - SPINAL FRACTURE [None]
  - STRESS FRACTURE [None]
  - WRIST FRACTURE [None]
